FAERS Safety Report 8272274-0 (Version None)
Quarter: 2012Q2

REPORT INFORMATION
  Report Type: 
  Country: None (occurrence: None)
  Receive Date: 20120410
  Receipt Date: 20120403
  Transmission Date: 20120825
  Serious: Yes (Hospitalization)
  Sender: FDA-Public Use
  Company Number: NL-MEDIMMUNE-MEDI-0014730

PATIENT
  Sex: Female
  Weight: 4.94 kg

DRUGS (2)
  1. SYNAGIS [Suspect]
     Indication: PREMATURE BABY
     Route: 030
     Dates: start: 20111005, end: 20111229
  2. SYNAGIS [Suspect]
     Route: 030
     Dates: start: 20120126

REACTIONS (2)
  - GASTROOESOPHAGEAL REFLUX DISEASE [None]
  - CRYING [None]
